FAERS Safety Report 8583838-9 (Version None)
Quarter: 2012Q3

REPORT INFORMATION
  Report Type: 
  Country: None (occurrence: None)
  Receive Date: 20120810
  Receipt Date: 20120731
  Transmission Date: 20120928
  Serious: Yes (Hospitalization, Disabling, Other)
  Sender: FDA-Public Use
  Company Number: US-009507513-1203USA03398

PATIENT

DRUGS (9)
  1. FOSAMAX [Suspect]
     Indication: OSTEOPENIA
  2. FOSAMAX [Suspect]
     Route: 048
     Dates: start: 20090721, end: 20091021
  3. PRILOSEC [Concomitant]
     Dates: start: 20020101
  4. CALCIUM (UNSPECIFIED) [Concomitant]
     Dosage: 2000 MG, QD
     Dates: start: 20020101
  5. MAGNESIUM (UNSPECIFIED) [Concomitant]
     Dosage: 400 MG, QD
     Dates: start: 20020101
  6. FOSAMAX PLUS D [Suspect]
     Dosage: 70/2800
     Route: 048
     Dates: start: 20070302, end: 20090101
  7. MK-9278 [Concomitant]
     Dosage: UNK UNK, QD
     Dates: start: 20020101
  8. FOSAMAX [Suspect]
     Indication: OSTEOPOROSIS
     Route: 048
     Dates: start: 20070302, end: 20090130
  9. VITAMIN D [Concomitant]
     Dosage: 4000 MG, QD
     Dates: start: 20020101

REACTIONS (25)
  - LIMB INJURY [None]
  - ASTHENIA [None]
  - ASTHMA [None]
  - FALL [None]
  - BACK PAIN [None]
  - INFLAMMATION [None]
  - PAIN [None]
  - LEFT VENTRICULAR HYPERTROPHY [None]
  - OSTEOARTHRITIS [None]
  - ARTHRALGIA [None]
  - ANAEMIA [None]
  - LOW TURNOVER OSTEOPATHY [None]
  - PULMONARY CONGESTION [None]
  - INFECTION [None]
  - TOOTH DISORDER [None]
  - CATARACT [None]
  - COUGH [None]
  - CARDIOMEGALY [None]
  - INTERVERTEBRAL DISC DEGENERATION [None]
  - CHRONIC OBSTRUCTIVE PULMONARY DISEASE [None]
  - FEMUR FRACTURE [None]
  - OSTEOPOROSIS [None]
  - VITAMIN D DEFICIENCY [None]
  - EYE DISORDER [None]
  - OEDEMA PERIPHERAL [None]
